FAERS Safety Report 7397286-0 (Version None)
Quarter: 2011Q2

REPORT INFORMATION
  Report Type: 
  Country: None (occurrence: None)
  Receive Date: 20110406
  Receipt Date: 20110401
  Transmission Date: 20111010
  Serious: Yes (Other)
  Sender: FDA-Public Use
  Company Number: JP-PFIZER INC-2011073459

PATIENT

DRUGS (1)
  1. ZYVOX [Suspect]
     Route: 065

REACTIONS (2)
  - RENAL FAILURE ACUTE [None]
  - PANCYTOPENIA [None]
